FAERS Safety Report 26206999 (Version 1)
Quarter: 2025Q4

REPORT INFORMATION
  Report Type: Report from Study
  Country: CA (occurrence: CA)
  Receive Date: 20251229
  Receipt Date: 20251229
  Transmission Date: 20260119
  Serious: Yes (Other)
  Sender: TAKEDA
  Company Number: CA-TAKEDA-2025TUS054050

PATIENT
  Age: 79 Year
  Sex: Male

DRUGS (6)
  1. VEDOLIZUMAB [Suspect]
     Active Substance: VEDOLIZUMAB
     Indication: Colitis ulcerative
     Dosage: 300 MILLIGRAM
  2. VEDOLIZUMAB [Suspect]
     Active Substance: VEDOLIZUMAB
     Dosage: 300 MILLIGRAM
  3. VEDOLIZUMAB [Suspect]
     Active Substance: VEDOLIZUMAB
     Dosage: 108 MILLIGRAM, Q2WEEKS
  4. MESALAMINE [Concomitant]
     Active Substance: MESALAMINE
     Dosage: UNK
  5. FERROUS SULFATE [Concomitant]
     Active Substance: FERROUS SULFATE
     Dosage: UNK
  6. Cortiment [Concomitant]
     Dosage: UNK

REACTIONS (17)
  - Psoriatic arthropathy [Unknown]
  - Therapeutic reaction time decreased [Unknown]
  - Productive cough [Unknown]
  - Osteoarthritis [Unknown]
  - Anaemia [Unknown]
  - Injection site pain [Unknown]
  - Drug intolerance [Unknown]
  - Musculoskeletal disorder [Unknown]
  - Tendonitis [Unknown]
  - Bursitis [Unknown]
  - Myalgia [Unknown]
  - Inflammation [Unknown]
  - Haemoglobin abnormal [Unknown]
  - Malaise [Unknown]
  - Abdominal pain [Unknown]
  - Rhinorrhoea [Unknown]
  - Plantar fasciitis [Unknown]
